FAERS Safety Report 25235010 (Version 1)
Quarter: 2025Q2

REPORT INFORMATION
  Report Type: Spontaneous
  Country: GB (occurrence: GB)
  Receive Date: 20250424
  Receipt Date: 20250424
  Transmission Date: 20250717
  Serious: Yes (Other)
  Sender: PFIZER
  Company Number: None

PATIENT
  Sex: Male

DRUGS (1)
  1. ADCETRIS [Suspect]
     Active Substance: BRENTUXIMAB VEDOTIN
     Route: 065

REACTIONS (2)
  - Hypoxia [Recovering/Resolving]
  - Hypotension [Recovering/Resolving]
